FAERS Safety Report 9516413 (Version 3)
Quarter: 2013Q4

REPORT INFORMATION
  Report Type: Spontaneous
  Country: JP (occurrence: JP)
  Receive Date: 20130911
  Receipt Date: 20131015
  Transmission Date: 20140711
  Serious: Yes (Death)
  Sender: FDA-Public Use
  Company Number: JP-GE HEALTHCARE MEDICAL DIAGNOSTICS-MSTR-PR-1309S-0021

PATIENT
  Age: 51 Year
  Sex: Female
  Weight: 63 kg

DRUGS (6)
  1. METASTRON [Suspect]
     Indication: THERAPEUTIC PROCEDURE
  2. ZOMETA [Concomitant]
  3. FENTOS [Concomitant]
  4. OXINORM [Concomitant]
  5. FENTANYL [Concomitant]
  6. METASTRON [Suspect]
     Indication: METASTASES TO BONE
     Dates: start: 20130726, end: 20130726

REACTIONS (1)
  - Diarrhoea [Fatal]
